FAERS Safety Report 23748637 (Version 3)
Quarter: 2024Q3

REPORT INFORMATION
  Report Type: Spontaneous
  Country: US (occurrence: US)
  Receive Date: 20240416
  Receipt Date: 20240702
  Transmission Date: 20241016
  Serious: Yes (Other)
  Sender: BRISTOL MYERS SQUIBB
  Company Number: US-BRISTOL-MYERS SQUIBB COMPANY-2024-059167

PATIENT
  Age: 78 Year
  Sex: Male

DRUGS (2)
  1. LENALIDOMIDE [Suspect]
     Active Substance: LENALIDOMIDE
     Indication: Plasma cell myeloma
     Dosage: TAKE 1 CAP BY MOUTH WHOLE W/ WATER DAILY FOR 14 DAYS,THEN 7 DAYS OFF OF A 21 DAYS CYCLE.X DO NOT BRE
     Route: 048
  2. LENALIDOMIDE [Suspect]
     Active Substance: LENALIDOMIDE
     Dosage: TAKE 1 CAPSULE BY MOUTH WHOLE W/WATER DAILY FOR 14 DAYS OUT OF A 21 DAY CYCLE.DO NOT BREAK
     Route: 048
     Dates: end: 20240606

REACTIONS (3)
  - Product dose omission issue [Recovered/Resolved]
  - Off label use [Unknown]
  - Therapy interrupted [Unknown]
